FAERS Safety Report 22340515 (Version 2)
Quarter: 2023Q2

REPORT INFORMATION
  Report Type: Report from Study
  Country: US (occurrence: US)
  Receive Date: 20230518
  Receipt Date: 20230607
  Transmission Date: 20230721
  Serious: Yes (Other)
  Sender: FDA-Public Use
  Company Number: US-JAZZ PHARMACEUTICALS-2023-US-010340

PATIENT
  Sex: Male

DRUGS (9)
  1. XYREM [Suspect]
     Active Substance: SODIUM OXYBATE
     Indication: Somnolence
     Dosage: 2.25 GRAM, BID
  2. XYREM [Suspect]
     Active Substance: SODIUM OXYBATE
     Indication: Insomnia
     Dosage: 3 GRAM, BID
  3. XYREM [Suspect]
     Active Substance: SODIUM OXYBATE
     Dosage: 3.75 GRAM, BID
  4. XYREM [Suspect]
     Active Substance: SODIUM OXYBATE
     Dosage: 4.5 GRAM, BID
  5. PROVIGIL [Concomitant]
     Active Substance: MODAFINIL
     Dosage: UNK
     Dates: start: 20150707
  6. RAMELTEON [Concomitant]
     Active Substance: RAMELTEON
     Dosage: UNK
  7. MEMANTINE [Concomitant]
     Active Substance: MEMANTINE
  8. LISINOPRIL [Concomitant]
     Active Substance: LISINOPRIL
  9. GUANFACINE [Concomitant]
     Active Substance: GUANFACINE

REACTIONS (2)
  - Craniocerebral injury [Unknown]
  - Off label use [Unknown]
